FAERS Safety Report 6178950-8 (Version None)
Quarter: 2009Q2

REPORT INFORMATION
  Report Type: 
  Country: None (occurrence: None)
  Receive Date: 20090505
  Receipt Date: 20090428
  Transmission Date: 20091009
  Serious: No
  Sender: FDA-Public Use
  Company Number: US-JNJFOC-20090500024

PATIENT
  Sex: Female
  Weight: 113.4 kg

DRUGS (3)
  1. DURAGESIC-100 [Suspect]
     Indication: RADICULOPATHY
     Route: 062
  2. DURAGESIC-100 [Suspect]
     Indication: MULTIPLE SCLEROSIS
     Route: 062
  3. UNSPECIFED MEDICATIONS [Concomitant]
     Route: 065

REACTIONS (1)
  - WRONG TECHNIQUE IN DRUG USAGE PROCESS [None]
